FAERS Safety Report 14773502 (Version 2)
Quarter: 2018Q2

REPORT INFORMATION
  Report Type: Spontaneous
  Country: TR (occurrence: TR)
  Receive Date: 20180418
  Receipt Date: 20180511
  Transmission Date: 20180711
  Serious: Yes (Other)
  Sender: FDA-Public Use
  Company Number: TR-GLAXOSMITHKLINE-TR2018GSK063363

PATIENT
  Sex: Female

DRUGS (2)
  1. FLIXOTIDE [Suspect]
     Active Substance: FLUTICASONE PROPIONATE
     Indication: PNEUMONIA
     Dosage: 2 DF, UNK, MG/DL
  2. ARCAPTA NEOHALER [Concomitant]
     Active Substance: INDACATEROL MALEATE
     Indication: PRODUCT USED FOR UNKNOWN INDICATION
     Dosage: UNK

REACTIONS (8)
  - Feeding disorder [Not Recovered/Not Resolved]
  - Dyspepsia [Recovered/Resolved]
  - Pharyngeal injury [Recovered/Resolved]
  - Eructation [Recovered/Resolved]
  - Oesophageal injury [Recovering/Resolving]
  - Gastric disorder [Recovered/Resolved]
  - Mouth injury [Recovering/Resolving]
  - Oesophageal pain [Recovered/Resolved]
